FAERS Safety Report 9834702 (Version 2)
Quarter: 2014Q1

REPORT INFORMATION
  Report Type: Spontaneous
  Country: BR (occurrence: BR)
  Receive Date: 20140122
  Receipt Date: 20140122
  Transmission Date: 20141002
  Serious: Yes (Hospitalization, Other)
  Sender: FDA-Public Use
  Company Number: BR-ASTRAZENECA-2013SE83721

PATIENT
  Age: 80 Year
  Sex: Male
  Weight: 79.5 kg

DRUGS (6)
  1. CRESTOR [Suspect]
     Indication: BLOOD CHOLESTEROL INCREASED
     Route: 048
     Dates: start: 2008, end: 201311
  2. CRESTOR [Suspect]
     Indication: BLOOD CHOLESTEROL INCREASED
     Route: 048
     Dates: start: 201311
  3. SELOZOK [Suspect]
     Indication: BLOOD PRESSURE ABNORMAL
     Route: 048
  4. MONOCORDIL [Concomitant]
     Route: 048
  5. ENALAPRIL [Concomitant]
     Indication: BLOOD PRESSURE ABNORMAL
     Dosage: DAILY
     Route: 048
  6. GLIFAGE [Concomitant]
     Indication: DIABETES MELLITUS
     Dosage: DAILY
     Route: 048

REACTIONS (3)
  - Coronary artery occlusion [Recovered/Resolved]
  - Cardiac hypertrophy [Not Recovered/Not Resolved]
  - Blood cholesterol increased [Unknown]
